FAERS Safety Report 13820174 (Version 1)
Quarter: 2017Q3

REPORT INFORMATION
  Report Type: Spontaneous
  Country: US (occurrence: US)
  Receive Date: 20170801
  Receipt Date: 20170801
  Transmission Date: 20171127
  Serious: Yes (Hospitalization, Other)
  Sender: FDA-Public Use
  Company Number: US-IPCA LABORATORIES LIMITED-IPC-2017-US-001997

PATIENT
  Age: 26 Year
  Sex: Female

DRUGS (2)
  1. METOPROLOL. [Suspect]
     Active Substance: METOPROLOL
     Indication: ATRIAL TACHYCARDIA
     Dosage: 25 MG, UNK
  2. DILTIAZEM. [Suspect]
     Active Substance: DILTIAZEM
     Indication: ATRIAL TACHYCARDIA
     Dosage: 80 TABLETS (30 MG)

REACTIONS (4)
  - Hypotension [Recovered/Resolved]
  - Bradyarrhythmia [Unknown]
  - Intentional overdose [Unknown]
  - Suicide attempt [Unknown]
